FAERS Safety Report 19088980 (Version 1)
Quarter: 2021Q2

REPORT INFORMATION
  Report Type: Report from Study
  Country: IT (occurrence: IT)
  Receive Date: 20210403
  Receipt Date: 20210403
  Transmission Date: 20210717
  Serious: Yes (Hospitalization)
  Sender: FDA-Public Use
  Company Number: IT-TEVA-2021-IT-1896540

PATIENT
  Age: 64 Year
  Sex: Female

DRUGS (8)
  1. QUETIAPINE. [Concomitant]
     Active Substance: QUETIAPINE
  2. CARVEDILOL. [Suspect]
     Active Substance: CARVEDILOL
     Indication: DRUG ABUSE
     Route: 048
     Dates: start: 20210101, end: 20210101
  3. CARDIOASPIRIN [Concomitant]
     Active Substance: ASPIRIN
  4. ATORVASTATIN [Concomitant]
     Active Substance: ATORVASTATIN
  5. FUROSEMIDE. [Concomitant]
     Active Substance: FUROSEMIDE
  6. PREGABALIN. [Concomitant]
     Active Substance: PREGABALIN
  7. OMEPRAZOLE. [Concomitant]
     Active Substance: OMEPRAZOLE
  8. DELORAZEPAM [Concomitant]
     Active Substance: DELORAZEPAM

REACTIONS (3)
  - Hypotension [Not Recovered/Not Resolved]
  - Drug abuse [Not Recovered/Not Resolved]
  - Bradykinesia [Not Recovered/Not Resolved]

NARRATIVE: CASE EVENT DATE: 20210102
